FAERS Safety Report 7380366-3 (Version None)
Quarter: 2011Q1

REPORT INFORMATION
  Report Type: 
  Country: None (occurrence: None)
  Receive Date: 20110329
  Receipt Date: 20110322
  Transmission Date: 20110831
  Serious: Yes (Death)
  Sender: FDA-Public Use
  Company Number: JP-ALLERGAN-1104260US

PATIENT
  Age: 27 Year
  Sex: Male
  Weight: 35 kg

DRUGS (9)
  1. AKIRIDEN [Concomitant]
     Indication: SCHIZOPHRENIA
     Dosage: 3 MG, QD
     Route: 048
  2. LEVOTOMIN [Concomitant]
     Indication: SCHIZOPHRENIA
     Dosage: 25 MG, QD
     Route: 048
  3. BOTOX [Suspect]
     Route: 030
     Dates: start: 20091002, end: 20091002
  4. SEROQUEL [Concomitant]
     Indication: SCHIZOPHRENIA
     Dosage: 500 MG, QD
     Route: 048
  5. CYSVON [Concomitant]
     Indication: SCHIZOPHRENIA
     Dosage: 10 MG, QD
     Route: 048
  6. ZOPICOOL [Concomitant]
     Indication: SCHIZOPHRENIA
     Dosage: 10 MG, QD
     Route: 048
  7. BOTOX [Suspect]
     Indication: TORTICOLLIS
     Dosage: 90 UNITS, SINGLE
     Route: 030
     Dates: start: 20090818, end: 20090818
  8. DIAZEPAM [Concomitant]
     Indication: SCHIZOPHRENIA
     Dosage: 30 MG, QD
     Route: 048
  9. RISPERDAL [Concomitant]
     Indication: SCHIZOPHRENIA
     Dosage: 3 MG, QD
     Route: 048

REACTIONS (1)
  - ASPIRATION [None]
